FAERS Safety Report 18152860 (Version 4)
Quarter: 2021Q1

REPORT INFORMATION
  Report Type: Report from Study
  Country: US (occurrence: US)
  Receive Date: 20200815
  Receipt Date: 20210223
  Transmission Date: 20210419
  Serious: No
  Sender: FDA-Public Use
  Company Number: US-SHIRE-US202026143

PATIENT
  Age: 73 Year
  Sex: Female

DRUGS (8)
  1. TEDUGLUTIDE [Suspect]
     Active Substance: TEDUGLUTIDE
     Indication: SHORT-BOWEL SYNDROME
     Dosage: 0.286 (UNK), 1X/DAY:QD
     Route: 058
     Dates: start: 20200103
  2. TEDUGLUTIDE [Suspect]
     Active Substance: TEDUGLUTIDE
     Indication: MALABSORPTION
     Dosage: 0.286 (UNK), 1X/DAY:QD
     Route: 058
     Dates: start: 20191221
  3. TEDUGLUTIDE [Suspect]
     Active Substance: TEDUGLUTIDE
     Indication: SHORT-BOWEL SYNDROME
     Dosage: 0.286 (UNK), 1X/DAY:QD
     Route: 058
     Dates: start: 20200103
  4. TEDUGLUTIDE [Suspect]
     Active Substance: TEDUGLUTIDE
     Indication: MALABSORPTION
     Dosage: 0.286 (UNK), 1X/DAY:QD
     Route: 058
     Dates: start: 20191221
  5. TEDUGLUTIDE [Suspect]
     Active Substance: TEDUGLUTIDE
     Indication: MALABSORPTION
     Dosage: 0.286 (UNK), 1X/DAY:QD
     Route: 058
     Dates: start: 20191221
  6. TEDUGLUTIDE [Suspect]
     Active Substance: TEDUGLUTIDE
     Indication: MALABSORPTION
     Dosage: 0.286 (UNK), 1X/DAY:QD
     Route: 058
     Dates: start: 20191221
  7. TEDUGLUTIDE [Suspect]
     Active Substance: TEDUGLUTIDE
     Indication: SHORT-BOWEL SYNDROME
     Dosage: 0.286 (UNK), 1X/DAY:QD
     Route: 058
     Dates: start: 20200103
  8. TEDUGLUTIDE [Suspect]
     Active Substance: TEDUGLUTIDE
     Indication: SHORT-BOWEL SYNDROME
     Dosage: 0.286 (UNK), 1X/DAY:QD
     Route: 058
     Dates: start: 20200103

REACTIONS (5)
  - Weight decreased [Unknown]
  - Diarrhoea [Recovering/Resolving]
  - Gastrointestinal disorder [Unknown]
  - Product dose omission issue [Recovered/Resolved]
  - Pain [Unknown]

NARRATIVE: CASE EVENT DATE: 20200810
